FAERS Safety Report 15349069 (Version 1)
Quarter: 2018Q3

REPORT INFORMATION
  Report Type: Spontaneous
  Country: US (occurrence: US)
  Receive Date: 20180904
  Receipt Date: 20180904
  Transmission Date: 20181010
  Serious: Yes (Hospitalization)
  Sender: FDA-Public Use
  Company Number: US-OTSUKA-2018_029729

PATIENT
  Sex: Male

DRUGS (1)
  1. ABILIFY [Suspect]
     Active Substance: ARIPIPRAZOLE
     Indication: BIPOLAR I DISORDER
     Dosage: UNK
     Route: 048
     Dates: end: 201711

REACTIONS (3)
  - Hospitalisation [Unknown]
  - Treatment noncompliance [Unknown]
  - Therapy cessation [Unknown]

NARRATIVE: CASE EVENT DATE: 2017
